FAERS Safety Report 24027189 (Version 6)
Quarter: 2025Q3

REPORT INFORMATION
  Report Type: Report from Study
  Country: US (occurrence: US)
  Receive Date: 20240628
  Receipt Date: 20250816
  Transmission Date: 20251021
  Serious: No
  Sender: ALEXION PHARMACEUTICALS
  Company Number: US-AstraZeneca-CH-00649980A

PATIENT
  Age: 65 Year
  Sex: Female

DRUGS (1)
  1. SOLIRIS [Suspect]
     Active Substance: ECULIZUMAB
     Indication: Neuromyelitis optica spectrum disorder
     Route: 065

REACTIONS (9)
  - Herpes zoster [Unknown]
  - Intervertebral disc protrusion [Unknown]
  - Product distribution issue [Unknown]
  - Musculoskeletal stiffness [Unknown]
  - Headache [Unknown]
  - Hyperhidrosis [Unknown]
  - Pain in extremity [Unknown]
  - Feeling hot [Unknown]
  - Nausea [Unknown]

NARRATIVE: CASE EVENT DATE: 20240619
